FAERS Safety Report 9988799 (Version 5)
Quarter: 2013Q4

REPORT INFORMATION
  Report Type: Spontaneous
  Country: US (occurrence: None)
  Receive Date: 20131018
  Receipt Date: 20131213
  Transmission Date: 20140711
  Serious: Yes (Life-Threatening, Hospitalization, Other)
  Sender: FDA-Public Use
  Company Number: ADR-2013-00332

PATIENT
  Sex: Female

DRUGS (2)
  1. BACLOFEN [Suspect]
     Indication: MUSCLE SPASTICITY
  2. MORPHINE [Suspect]
     Dosage: 1 MG/DAY

REACTIONS (28)
  - Overdose [None]
  - Unresponsive to stimuli [None]
  - Headache [None]
  - Suicidal ideation [None]
  - Feeling abnormal [None]
  - Somnolence [None]
  - Vomiting [None]
  - Retching [None]
  - Bladder disorder [None]
  - Stress urinary incontinence [None]
  - Hypotonia [None]
  - Insomnia [None]
  - Dyskinesia [None]
  - Muscle spasticity [None]
  - Muscle rigidity [None]
  - Muscle spasms [None]
  - Drug hypersensitivity [None]
  - Device kink [None]
  - No therapeutic response [None]
  - Respiratory arrest [None]
  - Drug intolerance [None]
  - Loss of consciousness [None]
  - Dysuria [None]
  - Inadequate analgesia [None]
  - Urinary tract infection [None]
  - Urinary retention [None]
  - Respiratory disorder [None]
  - Mobility decreased [None]
